FAERS Safety Report 8248080-X (Version None)
Quarter: 2012Q1

REPORT INFORMATION
  Report Type: 
  Country: None (occurrence: None)
  Receive Date: 20120330
  Receipt Date: 20120321
  Transmission Date: 20120608
  Serious: Yes (Hospitalization)
  Sender: FDA-Public Use
  Company Number: PHEH2012US006430

PATIENT
  Sex: Female

DRUGS (7)
  1. NORPACE [Concomitant]
  2. METOCLOPRAMIDE [Concomitant]
  3. NAPROXEN [Concomitant]
  4. ACCUPRIL [Concomitant]
  5. SIMVASTATIN [Concomitant]
  6. EXFORGE [Suspect]
  7. DICYCLOMINE [Concomitant]

REACTIONS (1)
  - CHEILITIS [None]
